FAERS Safety Report 9436630 (Version 1)
Quarter: 2013Q3

REPORT INFORMATION
  Report Type: Spontaneous
  Country: US (occurrence: None)
  Receive Date: 20130801
  Receipt Date: 20130801
  Transmission Date: 20140515
  Serious: Yes (Other)
  Sender: FDA-Public Use
  Company Number: None

PATIENT
  Age: 48 None
  Sex: Female
  Weight: 85.28 kg

DRUGS (12)
  1. MODAFINIL [Suspect]
     Indication: SLEEP APNOEA SYNDROME
     Dosage: 1 TABLET ONCE IN MORNING BY MOUTH.
     Route: 048
     Dates: start: 20130731, end: 20130731
  2. MODAFINIL [Suspect]
     Indication: CONTINUOUS POSITIVE AIRWAY PRESSURE
     Dosage: 1 TABLET ONCE IN MORNING BY MOUTH.
     Route: 048
     Dates: start: 20130731, end: 20130731
  3. PROZAC [Concomitant]
  4. CYMBALTA [Concomitant]
  5. KLONOPIN [Concomitant]
  6. LISINOPRIL [Concomitant]
  7. ESTRADIOL [Concomitant]
  8. ALBUTEROL INHALER PRN [Concomitant]
  9. ADVAIR [Concomitant]
  10. ALBUTEROL NEBULIZER [Concomitant]
  11. B COMPLEX VITAMIN [Concomitant]
  12. VITAMIN D [Concomitant]

REACTIONS (11)
  - Heart rate increased [None]
  - Blood pressure increased [None]
  - Hyperhidrosis [None]
  - Dyspnoea [None]
  - Anxiety [None]
  - Panic attack [None]
  - Paraesthesia [None]
  - Migraine [None]
  - Vomiting [None]
  - Back pain [None]
  - Suicidal ideation [None]
